APPROVED DRUG PRODUCT: FENOFIBRATE
Active Ingredient: FENOFIBRATE
Strength: 160MG
Dosage Form/Route: TABLET;ORAL
Application: A216798 | Product #002 | TE Code: AB
Applicant: AUROBINDO PHARMA LTD
Approved: Sep 27, 2022 | RLD: No | RS: No | Type: RX